FAERS Safety Report 14986996 (Version 2)
Quarter: 2018Q2

REPORT INFORMATION
  Report Type: Spontaneous
  Country: US (occurrence: US)
  Receive Date: 20180608
  Receipt Date: 20180617
  Transmission Date: 20180711
  Serious: No
  Sender: FDA-Public Use
  Company Number: PHHY2018US011662

PATIENT
  Age: 66 Year
  Sex: Female

DRUGS (2)
  1. SYSTANE LUBRICANT [Suspect]
     Active Substance: POLYETHYLENE GLYCOL 400\PROPYLENE GLYCOL
     Indication: DRY EYE
     Route: 047
  2. ERYTHROMYCIN. [Concomitant]
     Active Substance: ERYTHROMYCIN
     Indication: EYELID INFECTION
     Dosage: (3 TO 5 GM), AT BEDTIME
     Route: 065

REACTIONS (2)
  - Head discomfort [Not Recovered/Not Resolved]
  - Hallucination, visual [Not Recovered/Not Resolved]
